FAERS Safety Report 11892706 (Version 1)
Quarter: 2016Q1

REPORT INFORMATION
  Report Type: Spontaneous
  Country: US (occurrence: US)
  Receive Date: 20160106
  Receipt Date: 20160106
  Transmission Date: 20160526
  Serious: No
  Sender: FDA-Public Use
  Company Number: US-PFIZER INC-2015439781

PATIENT
  Sex: Female

DRUGS (2)
  1. SYNTHROID [Suspect]
     Active Substance: LEVOTHYROXINE SODIUM
     Dosage: UNK
  2. CYTOMEL [Suspect]
     Active Substance: LIOTHYRONINE SODIUM
     Dosage: UNK

REACTIONS (8)
  - Diplopia [Unknown]
  - Headache [Unknown]
  - Hyperhidrosis [Unknown]
  - Visual impairment [Unknown]
  - Tinnitus [Unknown]
  - Vision blurred [Unknown]
  - Dizziness [Unknown]
  - Panic attack [Unknown]
